FAERS Safety Report 23696952 (Version 1)
Quarter: 2024Q2

REPORT INFORMATION
  Report Type: Spontaneous
  Country: US (occurrence: None)
  Receive Date: 20240401
  Receipt Date: 20240401
  Transmission Date: 20240717
  Serious: No
  Sender: FDA-Public Use
  Company Number: None

PATIENT
  Age: 46 Year
  Sex: Female

DRUGS (1)
  1. CREST 3D WHITE ADVANCED RADIANT MINT [Suspect]
     Active Substance: SODIUM FLUORIDE
     Dosage: DAILY?
     Dates: start: 20240326, end: 20240328

REACTIONS (1)
  - Oral mucosal eruption [None]

NARRATIVE: CASE EVENT DATE: 20240328
